FAERS Safety Report 22640558 (Version 1)
Quarter: 2023Q2

REPORT INFORMATION
  Report Type: Spontaneous
  Country: AD (occurrence: AD)
  Receive Date: 20230626
  Receipt Date: 20230626
  Transmission Date: 20230722
  Serious: Yes (Life-Threatening, Other)
  Sender: FDA-Public Use
  Company Number: AD-TEVA-2023-AD-2899413

PATIENT
  Sex: Male

DRUGS (1)
  1. COPAXONE [Suspect]
     Active Substance: GLATIRAMER ACETATE
     Indication: Multiple sclerosis
     Dosage: COPAXONE 40 MG/ML
     Route: 058
     Dates: start: 201510, end: 20230614

REACTIONS (3)
  - Urticaria [Recovering/Resolving]
  - Anaphylactic shock [Recovering/Resolving]
  - Immediate post-injection reaction [Recovering/Resolving]

NARRATIVE: CASE EVENT DATE: 20230614
